FAERS Safety Report 7395620-9 (Version None)
Quarter: 2011Q2

REPORT INFORMATION
  Report Type: 
  Country: None (occurrence: None)
  Receive Date: 20110405
  Receipt Date: 20091126
  Transmission Date: 20111010
  Serious: Yes (Other)
  Sender: FDA-Public Use
  Company Number: PHHY2009DE67516

PATIENT

DRUGS (1)
  1. EXTAVIA [Suspect]
     Dosage: UNK
     Route: 058
     Dates: start: 20091123

REACTIONS (9)
  - DECREASED APPETITE [None]
  - INJECTION SITE REACTION [None]
  - INFLUENZA [None]
  - BLADDER DYSFUNCTION [None]
  - MUSCLE SPASMS [None]
  - FATIGUE [None]
  - NASOPHARYNGITIS [None]
  - INJECTION SITE ERYTHEMA [None]
  - CYSTITIS [None]
